FAERS Safety Report 6993402-0 (Version None)
Quarter: 2010Q3

REPORT INFORMATION
  Report Type: 
  Country: None (occurrence: None)
  Receive Date: 20100917
  Receipt Date: 20100129
  Transmission Date: 20110219
  Serious: No
  Sender: FDA-Public Use
  Company Number: US-ASTRAZENECA-2010SE04460

PATIENT
  Age: 23502 Day
  Sex: Female
  Weight: 54.4 kg

DRUGS (2)
  1. SEROQUEL XR [Suspect]
     Indication: DEPRESSION
     Route: 048
  2. SEROQUEL XR [Suspect]
     Route: 048
     Dates: start: 20100115

REACTIONS (4)
  - DIARRHOEA [None]
  - INSOMNIA [None]
  - MOOD SWINGS [None]
  - NAUSEA [None]
